FAERS Safety Report 5294622-6 (Version None)
Quarter: 2007Q2

REPORT INFORMATION
  Report Type: 
  Country: None (occurrence: None)
  Receive Date: 20070412
  Receipt Date: 20070404
  Transmission Date: 20071010
  Serious: Yes (Hospitalization)
  Sender: FDA-Public Use
  Company Number: BE-GLAXOSMITHKLINE-B0461187A

PATIENT
  Age: 59 Year
  Sex: Female
  Weight: 99 kg

DRUGS (8)
  1. AVANDIA [Suspect]
     Dosage: 4MG PER DAY
     Route: 048
     Dates: start: 20060810, end: 20070101
  2. GLURENORM [Concomitant]
     Dosage: 2TAB TWICE PER DAY
     Route: 048
     Dates: start: 20050422
  3. ELTHYRONE [Concomitant]
     Dosage: 25UG PER DAY
  4. ANAFRANIL [Concomitant]
     Dosage: 75MG PER DAY
     Route: 048
     Dates: start: 19900101
  5. PANTOPRAZOLE SODIUM [Concomitant]
     Dosage: 40MG PER DAY
     Route: 048
  6. VITAMIN B [Concomitant]
     Indication: CROHN'S DISEASE
  7. UNKNOWN MEDICATION [Concomitant]
  8. AMLODIPINE [Concomitant]
     Dosage: 5MG PER DAY
     Route: 048

REACTIONS (11)
  - ABDOMINAL PAIN [None]
  - ALANINE AMINOTRANSFERASE INCREASED [None]
  - ASPARTATE AMINOTRANSFERASE INCREASED [None]
  - ASTHENIA [None]
  - BLOOD LACTATE DEHYDROGENASE INCREASED [None]
  - FATIGUE [None]
  - HAEMOLYTIC ANAEMIA [None]
  - HAEMORRHOID OPERATION [None]
  - HEPATIC STEATOSIS [None]
  - HYPERCHROMASIA [None]
  - MACROCYTOSIS [None]
